FAERS Safety Report 6692242-X (Version None)
Quarter: 2010Q2

REPORT INFORMATION
  Report Type: 
  Country: None (occurrence: None)
  Receive Date: 20100422
  Receipt Date: 20100414
  Transmission Date: 20101027
  Serious: Yes (Other)
  Sender: FDA-Public Use
  Company Number: GB-AMGEN-QUU406133

PATIENT

DRUGS (5)
  1. NEULASTA [Suspect]
     Indication: CHEMOTHERAPY
     Route: 065
  2. CYCLOPHOSPHAMIDE [Concomitant]
  3. EPIRUBICIN [Concomitant]
  4. FLUOROURACIL [Concomitant]
  5. DOCETAXEL [Concomitant]

REACTIONS (1)
  - NEUTROPENIA [None]
